FAERS Safety Report 8533715-4 (Version None)
Quarter: 2012Q3

REPORT INFORMATION
  Report Type: 
  Country: None (occurrence: None)
  Receive Date: 20120711
  Receipt Date: 20120702
  Transmission Date: 20120928
  Serious: No
  Sender: FDA-Public Use
  Company Number: NES-AE-12-007

PATIENT
  Age: 64 Year
  Sex: Male
  Weight: 117.4 kg

DRUGS (33)
  1. TOPROL-XL [Concomitant]
  2. AMOXICILLIN [Concomitant]
  3. CODEINE PHOSPHATE AND ACETAMINOPHEN [Concomitant]
  4. COLCHICINE [Concomitant]
  5. FUROSEMIDE [Concomitant]
  6. CYCLOBENAZPRINE [Concomitant]
  7. NEXIUM [Concomitant]
  8. BYETTA [Concomitant]
  9. METFORMIN HYDROCHLORIDE [Concomitant]
  10. ULTRACET [Concomitant]
  11. ZETIA [Concomitant]
  12. PROCHLORPERAZINE [Concomitant]
  13. HYDROCHLOROTHIAZIDE [Concomitant]
  14. TRAMADOL HYDROCHLORIDE AND ACETAMINOPHEN [Concomitant]
  15. ASPIRIN [Concomitant]
  16. NORVASC [Concomitant]
  17. ALBUTEROL [Concomitant]
  18. BENZONATATE [Concomitant]
  19. AVANDIA [Concomitant]
  20. DIOVAN [Concomitant]
  21. LISINOPRIL [Concomitant]
  22. LIPITOR [Concomitant]
  23. NITROTAB [Concomitant]
  24. ISOSORBIDE MONONITRATE [Suspect]
     Dosage: 60MG - ONCE DAILY - PO
     Route: 048
     Dates: start: 20040514
  25. ISOSORBIDE MONONITRATE [Suspect]
     Dosage: 30MG - ONCE DAILY - PO
     Route: 048
     Dates: end: 20090911
  26. ALLOPURINOL [Concomitant]
  27. WARFARIN SODIUM [Concomitant]
  28. ZITHROMAX [Concomitant]
  29. CIPROFLAXACIN [Concomitant]
  30. NIACIN [Concomitant]
  31. KLOR-CON [Concomitant]
  32. GLYBURIDE [Concomitant]
  33. OXYCODONE HCL AND ACETAMINOPHEN [Concomitant]

REACTIONS (3)
  - VASCULAR GRAFT [None]
  - CARDIAC FLUTTER [None]
  - CHEST PAIN [None]
